FAERS Safety Report 7019636-7 (Version None)
Quarter: 2010Q3

REPORT INFORMATION
  Report Type: 
  Country: None (occurrence: None)
  Receive Date: 20100928
  Receipt Date: 20100928
  Transmission Date: 20110219
  Serious: Yes (Hospitalization)
  Sender: FDA-Public Use
  Company Number: None

PATIENT
  Age: 38 Year
  Sex: Male
  Weight: 95.2554 kg

DRUGS (1)
  1. PROVIGIL [Suspect]
     Indication: DEPRESSION
     Dosage: 200MG  2-3X/WEEK PO
     Route: 048
     Dates: start: 20050101, end: 20100927

REACTIONS (2)
  - CHEST PAIN [None]
  - ELECTROCARDIOGRAM ST-T SEGMENT DEPRESSION [None]
